FAERS Safety Report 8056893-2 (Version None)
Quarter: 2012Q1

REPORT INFORMATION
  Report Type: 
  Country: None (occurrence: None)
  Receive Date: 20120119
  Receipt Date: 20120117
  Transmission Date: 20120608
  Serious: No
  Sender: FDA-Public Use
  Company Number: US-B.I. PHARMACEUTICALS,INC./RIDGEFIELD-2012-BP-00935BP

PATIENT
  Sex: Male

DRUGS (7)
  1. PRADAXA [Suspect]
     Indication: ATRIAL FIBRILLATION
     Dosage: 300 MG
     Route: 048
     Dates: start: 20110901
  2. LOPRESSOR [Concomitant]
     Indication: HYPERTENSION
  3. AMLODIPINE [Concomitant]
     Indication: HYPERTENSION
     Dosage: 10 MG
     Route: 048
  4. ALLOPURINOL [Concomitant]
     Indication: GOUT
  5. NASONEX [Concomitant]
     Indication: SINUS CONGESTION
     Route: 045
  6. CEFUROXIME [Concomitant]
     Indication: SINUSITIS
     Dosage: 500 MG
     Route: 048
  7. TECTERNER [Concomitant]
     Indication: HYPERTENSION
     Dosage: 300 MG
     Route: 048

REACTIONS (1)
  - BLEPHAROSPASM [None]
